FAERS Safety Report 10763395 (Version 3)
Quarter: 2018Q1

REPORT INFORMATION
  Report Type: Spontaneous
  Country: US (occurrence: US)
  Receive Date: 20150204
  Receipt Date: 20180313
  Transmission Date: 20180508
  Serious: Yes (Death, Other)
  Sender: FDA-Public Use
  Company Number: US-ELI_LILLY_AND_COMPANY-US201502000106

PATIENT
  Age: 51 Year
  Sex: Male
  Weight: 102 kg

DRUGS (19)
  1. METFORMIN [Concomitant]
     Active Substance: METFORMIN HYDROCHLORIDE
     Dosage: 1000 MG, QD
     Route: 048
  2. VILAZODONE [Concomitant]
     Active Substance: VILAZODONE
     Dosage: 40 MG, QD
     Route: 048
  3. HYDROCHLOROTHIAZIDE. [Concomitant]
     Active Substance: HYDROCHLOROTHIAZIDE
     Dosage: 25 MG, QD
     Route: 048
  4. CALTRATE WITH VITAMIN D [Concomitant]
     Active Substance: CALCIUM CARBONATE\CHOLECALCIFEROL
     Dosage: 2 DF, UNK
     Route: 048
  5. N-ACETYL-L-CYSTEINE [Concomitant]
     Active Substance: ACETYLCYSTEINE
     Dosage: 1800 MG, UNK
     Route: 048
  6. JANUVIA [Concomitant]
     Active Substance: SITAGLIPTIN PHOSPHATE
     Dosage: 50 MG, QD
     Route: 048
  7. LORTAB [Concomitant]
     Active Substance: ACETAMINOPHEN\HYDROCODONE BITARTRATE
     Dosage: 1 DF, QD
     Route: 048
  8. FLUTICASONE PROPIONATE. [Concomitant]
     Active Substance: FLUTICASONE PROPIONATE
     Dosage: 1 DF, QD
  9. CRESTOR [Concomitant]
     Active Substance: ROSUVASTATIN CALCIUM
     Dosage: 5 MG, WEEKLY (1/W)
     Route: 048
  10. REVATIO [Concomitant]
     Active Substance: SILDENAFIL CITRATE
     Dosage: 40 MG, TID
  11. AXIRON [Suspect]
     Active Substance: TESTOSTERONE
     Indication: ANDROGEN REPLACEMENT THERAPY
     Dosage: 30 MG, QD
     Route: 062
     Dates: start: 20120706
  12. AZATHIOPRINE. [Concomitant]
     Active Substance: AZATHIOPRINE
     Dosage: 150 MG, QD
     Route: 048
  13. METOPROLOL. [Concomitant]
     Active Substance: METOPROLOL
     Dosage: 75 MG, QD
     Route: 048
  14. FEXOFENADINE [Concomitant]
     Active Substance: FEXOFENADINE\FEXOFENADINE HYDROCHLORIDE
     Dosage: 180 MG, QD
     Route: 048
  15. NYSTATIN. [Concomitant]
     Active Substance: NYSTATIN
     Dosage: 1 DF, PRN
     Route: 048
  16. LANSOPRAZOLE. [Concomitant]
     Active Substance: LANSOPRAZOLE
     Dosage: 30 MG, QD
     Route: 048
  17. VIT E                              /00110501/ [Concomitant]
     Active Substance: TOCOPHEROL
     Dosage: 800 IU, QD
     Route: 048
  18. IBUPROFEN. [Concomitant]
     Active Substance: IBUPROFEN
     Dosage: 800 MG, PRN
     Route: 048
  19. ASPIRIN                            /00002701/ [Concomitant]
     Active Substance: ASPIRIN
     Dosage: 81 MG, QD
     Route: 048

REACTIONS (12)
  - Brain injury [Unknown]
  - Sinus tachycardia [Unknown]
  - Atrial fibrillation [Unknown]
  - Pulmonary hypertension [Fatal]
  - Status epilepticus [Unknown]
  - Cardiomegaly [Unknown]
  - Bundle branch block right [Unknown]
  - Lactic acidosis [Unknown]
  - Polymyositis [Fatal]
  - Cardiac arrest [Fatal]
  - Myocardial infarction [Unknown]
  - Coagulopathy [Unknown]

NARRATIVE: CASE EVENT DATE: 20121020
